FAERS Safety Report 24148291 (Version 4)
Quarter: 2025Q3

REPORT INFORMATION
  Report Type: Spontaneous
  Country: US (occurrence: US)
  Receive Date: 20240729
  Receipt Date: 20250714
  Transmission Date: 20251021
  Serious: No
  Sender: SANOFI AVENTIS
  Company Number: US-SANOFI-02147471

PATIENT
  Age: 68 Year
  Sex: Female

DRUGS (3)
  1. LANTUS SOLOSTAR [Suspect]
     Active Substance: INSULIN GLARGINE
     Indication: Type 1 diabetes mellitus
     Dosage: 20 IU, QD
  2. LANTUS SOLOSTAR [Suspect]
     Active Substance: INSULIN GLARGINE
     Indication: Diabetes mellitus
     Dosage: 18 IU, QD
     Route: 065
  3. NOVOLOG [Concomitant]
     Active Substance: INSULIN ASPART

REACTIONS (4)
  - Hyperglycaemia [Recovering/Resolving]
  - Wrong technique in device usage process [Unknown]
  - Product storage error [Unknown]
  - Intentional product misuse [Unknown]
